FAERS Safety Report 10227928 (Version 2)
Quarter: 2014Q2

REPORT INFORMATION
  Report Type: Spontaneous
  Country: IT (occurrence: IT)
  Receive Date: 20140610
  Receipt Date: 20140616
  Transmission Date: 20141212
  Serious: Yes (Disabling)
  Sender: FDA-Public Use
  Company Number: IT-009507513-1406ITA004310

PATIENT
  Age: 73 Year
  Sex: Female
  Weight: 65 kg

DRUGS (1)
  1. VANTAVO [Suspect]
     Indication: OSTEOPOROSIS
     Dosage: 70 MG/5600 UL CYCLIC
     Route: 048
     Dates: start: 20020101, end: 20120727

REACTIONS (1)
  - Osteonecrosis [Recovered/Resolved with Sequelae]
